FAERS Safety Report 4426319-6 (Version None)
Quarter: 2004Q3

REPORT INFORMATION
  Report Type: 
  Country: None (occurrence: None)
  Receive Date: 20040810
  Receipt Date: 20040726
  Transmission Date: 20050211
  Serious: Yes (Hospitalization)
  Sender: FDA-Public Use
  Company Number: 104896ISR

PATIENT
  Age: 51 Year
  Sex: Male

DRUGS (7)
  1. ETOPOSIDE [Suspect]
     Dosage: 555 MILLIGRAM, INTRAVENOUS (NOS)
     Route: 042
     Dates: start: 20040418, end: 20040420
  2. CYCLOPHOSPHAMIDE [Suspect]
     Dosage: 4260 MILLIGRAM, INTRAVENOUS (NOS)
     Route: 042
     Dates: start: 20040418, end: 20040419
  3. MESNA [Suspect]
     Dosage: 4400 MILLIGRAM, INTRAVENOUS (NOS)
     Route: 042
     Dates: start: 20040418, end: 20040419
  4. ALLOPURINOL [Concomitant]
  5. LANSOPRAZOLE [Concomitant]
  6. FLUCONAZOLE [Concomitant]
  7. VALACYCLOVIR HCL [Concomitant]

REACTIONS (5)
  - HEADACHE [None]
  - MUSCLE CRAMP [None]
  - PAIN IN JAW [None]
  - RASH ERYTHEMATOUS [None]
  - THROAT TIGHTNESS [None]
